FAERS Safety Report 9903748 (Version 1)
Quarter: 2014Q1

REPORT INFORMATION
  Report Type: Spontaneous
  Country: IN (occurrence: IN)
  Receive Date: 20140218
  Receipt Date: 20140218
  Transmission Date: 20141002
  Serious: Yes (Death, Life-Threatening, Hospitalization, Other)
  Sender: FDA-Public Use
  Company Number: IN-009507513-1402IND007548

PATIENT
  Age: 37 Year
  Sex: Female

DRUGS (3)
  1. VIRAFERONPEG [Suspect]
     Indication: HEPATITIS C
     Dosage: UNK, QW
     Route: 058
     Dates: start: 20130418
  2. VIRAFERONPEG [Suspect]
     Dosage: UNK, QW
     Route: 058
     Dates: end: 20131115
  3. REBETOL [Suspect]
     Route: 048

REACTIONS (6)
  - Gastric operation [Fatal]
  - Condition aggravated [Fatal]
  - Gastric infection [Fatal]
  - Asthenia [Fatal]
  - Viral load increased [Unknown]
  - Blood urine [Unknown]
